FAERS Safety Report 7388771-6 (Version None)
Quarter: 2011Q1

REPORT INFORMATION
  Report Type: 
  Country: None (occurrence: None)
  Receive Date: 20110329
  Receipt Date: 20110329
  Transmission Date: 20110831
  Serious: No
  Sender: FDA-Public Use
  Company Number: None

PATIENT
  Age: 51 Year
  Sex: Male

DRUGS (2)
  1. METFORMIN HYDROCHLORIDE [Suspect]
  2. OXYCODONE/ACETAMINOPHEN [Suspect]

REACTIONS (8)
  - ACIDOSIS [None]
  - INCORRECT DOSE ADMINISTERED [None]
  - AGONAL RHYTHM [None]
  - BLOOD GLUCOSE DECREASED [None]
  - PRODUCT LABEL ISSUE [None]
  - UNRESPONSIVE TO STIMULI [None]
  - BLOOD PRESSURE DECREASED [None]
  - MEDICATION ERROR [None]
